FAERS Safety Report 9306579 (Version 1)
Quarter: 2013Q2

REPORT INFORMATION
  Report Type: Spontaneous
  Country: US (occurrence: US)
  Receive Date: 20130523
  Receipt Date: 20130523
  Transmission Date: 20140414
  Serious: Yes (Hospitalization, Congenital Anomaly)
  Sender: FDA-Public Use
  Company Number: US-AMGEN-USASP2013035551

PATIENT
  Sex: 0

DRUGS (2)
  1. ENBREL [Suspect]
     Indication: PSORIATIC ARTHROPATHY
     Dosage: 50 MG, QWK
     Route: 064
     Dates: start: 20031101
  2. METHOTREXATE [Concomitant]
     Dosage: UNK
     Route: 064

REACTIONS (5)
  - Multiple congenital abnormalities [Unknown]
  - Congenital cystic lung [Unknown]
  - Congenital hydrocephalus [Unknown]
  - Pierre Robin syndrome [Unknown]
  - Congenital tracheomalacia [Unknown]
